FAERS Safety Report 20977627 (Version 1)
Quarter: 2022Q2

REPORT INFORMATION
  Report Type: Spontaneous
  Country: ES (occurrence: ES)
  Receive Date: 20220618
  Receipt Date: 20220618
  Transmission Date: 20220721
  Serious: Yes (Other)
  Sender: FDA-Public Use
  Company Number: ES-TILLOMEDPR-2021-EPL-001259

PATIENT
  Age: 58 Year
  Sex: Female

DRUGS (2)
  1. BORTEZOMIB [Suspect]
     Active Substance: BORTEZOMIB
     Indication: Plasma cell myeloma
     Dosage: UNK
     Route: 065
  2. DEXAMETHASONE [Suspect]
     Active Substance: DEXAMETHASONE
     Indication: Plasma cell myeloma
     Dosage: UNK
     Route: 065

REACTIONS (6)
  - Ocular discomfort [Recovered/Resolved]
  - Chalazion [Recovered/Resolved]
  - Ocular toxicity [Unknown]
  - Eye inflammation [Recovered/Resolved]
  - Hordeolum [Recovered/Resolved]
  - Eyelid oedema [Recovering/Resolving]
